FAERS Safety Report 9348583 (Version 1)
Quarter: 2013Q2

REPORT INFORMATION
  Report Type: Spontaneous
  Country: US (occurrence: None)
  Receive Date: 20130613
  Receipt Date: 20130613
  Transmission Date: 20140414
  Serious: No
  Sender: FDA-Public Use
  Company Number: None

PATIENT
  Sex: Female
  Weight: 68.04 kg

DRUGS (3)
  1. BUPROPION [Suspect]
     Indication: ANXIETY
  2. BUPROPION [Suspect]
     Indication: DEPRESSION
  3. DROSPIRENONE/ETHINYL ESTRADIOL [Suspect]
     Indication: CONTRACEPTION

REACTIONS (2)
  - Urticaria [None]
  - Hyperkalaemia [None]
